FAERS Safety Report 14327950 (Version 1)
Quarter: 2017Q4

REPORT INFORMATION
  Report Type: Spontaneous
  Country: ES (occurrence: ES)
  Receive Date: 20171227
  Receipt Date: 20171227
  Transmission Date: 20180321
  Serious: Yes (Death)
  Sender: FDA-Public Use
  Company Number: ES-JNJFOC-20171230847

PATIENT
  Age: 52 Year
  Sex: Male

DRUGS (6)
  1. TRANXILIUM [Concomitant]
     Active Substance: CLORAZEPATE DIPOTASSIUM
     Indication: MANIA
     Route: 048
     Dates: start: 20170418
  2. OLANZAPINA [Concomitant]
     Active Substance: OLANZAPINE
     Indication: MANIA
     Route: 048
     Dates: start: 20170418
  3. SINOGAN [Concomitant]
     Active Substance: LEVOMEPROMAZINE
     Indication: MANIA
     Route: 048
     Dates: start: 20170418
  4. TRAMADOL HYDROCHLORIDE. [Concomitant]
     Active Substance: TRAMADOL HYDROCHLORIDE
     Indication: MANIA
     Route: 065
     Dates: start: 20170112
  5. XEPLION [Suspect]
     Active Substance: PALIPERIDONE PALMITATE
     Indication: MANIA
     Route: 030
     Dates: start: 20170505
  6. TRANXILIUM [Concomitant]
     Active Substance: CLORAZEPATE DIPOTASSIUM
     Indication: MANIA
     Route: 048
     Dates: start: 20170920

REACTIONS (5)
  - Product use in unapproved indication [Unknown]
  - Inappropriate schedule of drug administration [Unknown]
  - Off label use [Unknown]
  - Sudden death [Fatal]
  - Cardio-respiratory arrest [Fatal]

NARRATIVE: CASE EVENT DATE: 20170505
